FAERS Safety Report 4720389-3 (Version None)
Quarter: 2005Q3

REPORT INFORMATION
  Report Type: 
  Country: None (occurrence: None)
  Receive Date: 20050719
  Receipt Date: 20050708
  Transmission Date: 20060218
  Serious: Yes (Hospitalization)
  Sender: FDA-Public Use
  Company Number: 050079

PATIENT
  Age: 51 Year
  Sex: Male
  Weight: 95.2554 kg

DRUGS (3)
  1. HALFLYTELY [Suspect]
     Indication: COLONOSCOPY
     Dosage: 20 MG/2L, 1X, PO
     Route: 048
     Dates: start: 20050629
  2. HIGH BLOOD PRESSURE MEDICATIONS [Concomitant]
  3. .. [Suspect]

REACTIONS (4)
  - ANAPHYLACTIC REACTION [None]
  - APHONIA [None]
  - DYSPHONIA [None]
  - THROAT TIGHTNESS [None]
